FAERS Safety Report 17715678 (Version 1)
Quarter: 2020Q2

REPORT INFORMATION
  Report Type: Other
  Country: US (occurrence: US)
  Receive Date: 20200427
  Receipt Date: 20200427
  Transmission Date: 20200714
  Serious: Yes (Other)
  Sender: FDA-Public Use
  Company Number: US-ANAZAOHEALTH CORPORATION-2083180

PATIENT
  Age: 63 Year
  Sex: Female
  Weight: 84.09 kg

DRUGS (1)
  1. TESTOSTERONE 87.5 MG LOT 260069?TESTOSTERONE 50 MG LOT 252042?ESTRADIO [Suspect]
     Active Substance: ESTRADIOL\TESTOSTERONE
     Indication: HORMONE REPLACEMENT THERAPY
     Route: 058
     Dates: start: 20191114

REACTIONS (1)
  - Breast cancer [Recovering/Resolving]

NARRATIVE: CASE EVENT DATE: 20200227
